FAERS Safety Report 6667855-1 (Version None)
Quarter: 2010Q2

REPORT INFORMATION
  Report Type: 
  Country: None (occurrence: None)
  Receive Date: 20100405
  Receipt Date: 20100325
  Transmission Date: 20101027
  Serious: Yes (Other)
  Sender: FDA-Public Use
  Company Number: FR-PFIZER INC-2010038177

PATIENT
  Age: 86 Year
  Sex: Male
  Weight: 69.841 kg

DRUGS (3)
  1. LYRICA [Suspect]
     Dosage: 75 MG, 1X/DAY
     Route: 048
     Dates: start: 20100218
  2. PREVISCAN [Suspect]
     Indication: ATRIAL FIBRILLATION
     Dosage: 10 MG, 1X/DAY
     Route: 048
     Dates: start: 20060101
  3. PREVISCAN [Suspect]
     Dosage: 5 MG, 1X/DAY

REACTIONS (1)
  - INTERNATIONAL NORMALISED RATIO INCREASED [None]
